FAERS Safety Report 17253862 (Version 2)
Quarter: 2021Q1

REPORT INFORMATION
  Report Type: Spontaneous
  Country: US (occurrence: US)
  Receive Date: 20200109
  Receipt Date: 20210108
  Transmission Date: 20210419
  Serious: Yes (Hospitalization, Other)
  Sender: FDA-Public Use
  Company Number: US-AMNEAL PHARMACEUTICALS-2019-AMRX-02744

PATIENT
  Age: 33 Year
  Sex: Female
  Weight: 62 kg

DRUGS (16)
  1. ACTIVELLA [Suspect]
     Active Substance: ESTRADIOL\NORETHINDRONE ACETATE
     Dosage: 1 DOSAGE FORM, QD
     Route: 048
     Dates: start: 20190723, end: 20190911
  2. ELAGOLIX [Suspect]
     Active Substance: ELAGOLIX
     Indication: ENDOMETRIOSIS
     Dosage: 2 DOSAGE FORM, 1 /DAY (400 MG, 200 MG,2 IN 1 D)
     Route: 048
     Dates: start: 20180814, end: 20190723
  3. ACTIVELLA [Suspect]
     Active Substance: ESTRADIOL\NORETHINDRONE ACETATE
     Indication: ENDOMETRIOSIS
     Dosage: 1 DOSAGE FORM, QD
     Route: 048
     Dates: start: 20180814, end: 20190723
  4. ELAGOLIX [Suspect]
     Active Substance: ELAGOLIX
     Dosage: 2 DOSAGE FORM, 1 /DAY (400 MG, 200 MG,2 IN 1 D)
     Route: 048
     Dates: start: 20190723, end: 20190911
  5. VITAMINS NOS [Concomitant]
     Active Substance: VITAMINS
     Indication: SUPPLEMENTATION THERAPY
     Dosage: 5 DOSAGE FORM, DAILY (4?1)
     Route: 048
     Dates: start: 2014
  6. PROBIOTICS NOS [Concomitant]
     Active Substance: PROBIOTICS NOS
     Indication: SUPPLEMENTATION THERAPY
     Dosage: 4 TABLETS, QD (2?2)
     Route: 048
     Dates: start: 2014
  7. VITAMIN D3 [Concomitant]
     Active Substance: CHOLECALCIFEROL
     Indication: SUPPLEMENTATION THERAPY
     Dosage: 5000 INTERNATIONAL UNIT, QD
     Route: 048
     Dates: start: 20190702
  8. DIGESTIVE ENZYMES [ALPHA?D?GALACTOSIDASE;AMYLASE;BROMELAINS;CELLULASE; [Concomitant]
     Indication: SUPPLEMENTATION THERAPY
     Dosage: 1 TABLETS, QD
     Route: 048
     Dates: start: 2014
  9. COLLAGEN [Concomitant]
     Active Substance: COLLAGEN
     Indication: SUPPLEMENTATION THERAPY
     Dosage: 3 TABLETS, DAILY (2?1)
     Route: 048
     Dates: start: 2014
  10. VITAMIN B12 [VITAMIN B12 NOS] [Concomitant]
     Active Substance: CYANOCOBALAMIN
     Indication: SUPPLEMENTATION THERAPY
     Dosage: 500 MICROGRAM, QD
     Route: 048
     Dates: start: 2014
  11. VYVANSE [Concomitant]
     Active Substance: LISDEXAMFETAMINE DIMESYLATE
     Indication: ATTENTION DEFICIT HYPERACTIVITY DISORDER
     Dosage: 20 MILLIGRAM, QD
     Route: 048
     Dates: start: 20190601
  12. VITAMIN C [Concomitant]
     Active Substance: ASCORBIC ACID
     Dosage: 1200 MILLIGRAM, QD
     Route: 048
     Dates: start: 20190702
  13. BIOTIN [Concomitant]
     Active Substance: BIOTIN
     Indication: SUPPLEMENTATION THERAPY
     Dosage: 1000 MICROGRAM, QD
     Route: 048
     Dates: start: 20190702
  14. VITAMIN B12 [VITAMIN B12 NOS] [Concomitant]
     Active Substance: CYANOCOBALAMIN
     Dosage: 1200 MICROGRAM, QD
     Route: 048
     Dates: start: 20190702
  15. VITAMIN C [Concomitant]
     Active Substance: ASCORBIC ACID
     Indication: SUPPLEMENTATION THERAPY
     Dosage: 60 MILLIGRAM, QD
     Route: 048
     Dates: start: 2014, end: 20190729
  16. EXCEDRIN [ACETYLSALICYLIC ACID;CAFFEINE;PARACETAMOL;SALICYLAMIDE] [Concomitant]
     Active Substance: ACETAMINOPHEN\ASPIRIN\CAFFEINE\SALICYLAMIDE
     Indication: HEADACHE
     Dosage: 1 TABLETS, AS NEEDED
     Route: 048
     Dates: start: 20180820

REACTIONS (1)
  - Endometriosis [Recovered/Resolved]

NARRATIVE: CASE EVENT DATE: 20190912
